FAERS Safety Report 15430816 (Version 1)
Quarter: 2018Q3

REPORT INFORMATION
  Report Type: Spontaneous
  Country: IT (occurrence: IT)
  Receive Date: 20180926
  Receipt Date: 20180926
  Transmission Date: 20181010
  Serious: Yes (Disabling)
  Sender: FDA-Public Use
  Company Number: IT-ASTRAZENECA-2018SE90346

PATIENT
  Age: 70 Year
  Sex: Female

DRUGS (4)
  1. IRESSA [Suspect]
     Active Substance: GEFITINIB
     Route: 048
     Dates: start: 20180507
  2. PANTOPRAZOLE [Concomitant]
     Active Substance: PANTOPRAZOLE
  3. NEBIVOLOL. [Concomitant]
     Active Substance: NEBIVOLOL
  4. FONDAPARINUX SODIUM. [Concomitant]
     Active Substance: FONDAPARINUX SODIUM

REACTIONS (3)
  - Hemiplegia [Recovering/Resolving]
  - Cerebral ischaemia [Recovering/Resolving]
  - Pulmonary embolism [Recovering/Resolving]

NARRATIVE: CASE EVENT DATE: 20180616
